FAERS Safety Report 16961448 (Version 1)
Quarter: 2019Q4

REPORT INFORMATION
  Report Type: Spontaneous
  Country: US (occurrence: US)
  Receive Date: 20191025
  Receipt Date: 20191025
  Transmission Date: 20200122
  Serious: Yes (Hospitalization, Other)
  Sender: FDA-Public Use
  Company Number: US-ACTELION-A-CH2019-197056

PATIENT
  Age: 24 Year
  Sex: Female

DRUGS (15)
  1. ASPIRIN. [Concomitant]
     Active Substance: ASPIRIN
     Dosage: UNK
  2. FUROSEMIDE. [Concomitant]
     Active Substance: FUROSEMIDE
     Dosage: UNK
  3. EPOPROSTENOL SODIUM. [Suspect]
     Active Substance: EPOPROSTENOL SODIUM
     Indication: PULMONARY ARTERIAL HYPERTENSION
     Dosage: 2 NG/KG, PER MIN
     Route: 042
  4. EPOPROSTENOL SODIUM. [Suspect]
     Active Substance: EPOPROSTENOL SODIUM
     Dosage: 6 NG/KG, PER MIN
     Route: 042
  5. AZATHIOPRINE. [Concomitant]
     Active Substance: AZATHIOPRINE
     Dosage: UNK
  6. METOPROLOL. [Concomitant]
     Active Substance: METOPROLOL
  7. BETAMETHASONE. [Concomitant]
     Active Substance: BETAMETHASONE
     Indication: MATERNAL THERAPY TO ENHANCE FOETAL LUNG MATURITY
  8. HYDROXYCHLOROQUINE [Concomitant]
     Active Substance: HYDROXYCHLOROQUINE
     Dosage: UNK
  9. PREDNISONE. [Concomitant]
     Active Substance: PREDNISONE
     Dosage: 60 MG, QD
  10. METHYLDOPA. [Concomitant]
     Active Substance: METHYLDOPA
  11. MAGNESIUM [Concomitant]
     Active Substance: MAGNESIUM
     Route: 042
  12. PREDNISONE. [Concomitant]
     Active Substance: PREDNISONE
     Dosage: 15 MG, QD
  13. EPOPROSTENOL SODIUM. [Suspect]
     Active Substance: EPOPROSTENOL SODIUM
     Dosage: 12 NG/KG, PER MIN
     Route: 042
  14. TACROLIMUS. [Concomitant]
     Active Substance: TACROLIMUS
     Dosage: UNK
  15. ENOXAPARIN [Concomitant]
     Active Substance: ENOXAPARIN

REACTIONS (20)
  - Hypocomplementaemia [Unknown]
  - Blood pressure systolic increased [Unknown]
  - Caesarean section [Recovered/Resolved]
  - Premature labour [Recovered/Resolved]
  - Oedema [Unknown]
  - Right ventricular dilatation [Unknown]
  - Vision blurred [Unknown]
  - Dyspnoea [Unknown]
  - Hypertension [Unknown]
  - Right atrial dilatation [Unknown]
  - Oedema peripheral [Unknown]
  - Weight increased [Unknown]
  - Systemic lupus erythematosus [Unknown]
  - Headache [Unknown]
  - Protein urine present [Unknown]
  - Pericardial effusion [Unknown]
  - Female sterilisation [Unknown]
  - Postpartum haemorrhage [Unknown]
  - Immunosuppressant drug level decreased [Unknown]
  - Hyperdynamic left ventricle [Unknown]
